FAERS Safety Report 9875122 (Version 1)
Quarter: 2014Q1

REPORT INFORMATION
  Report Type: Spontaneous
  Country: US (occurrence: None)
  Receive Date: 20140204
  Receipt Date: 20140204
  Transmission Date: 20141002
  Serious: Yes (Death)
  Sender: FDA-Public Use
  Company Number: 2014US00073

PATIENT
  Sex: 0

DRUGS (3)
  1. GEMCITABINE (GEMCITABINE) INJECTION [Suspect]
     Indication: BLADDER CANCER
     Dosage: OVER 30 MINUTES ON DAYS 1 AND 8.
  2. CARBOPLATIN [Suspect]
     Indication: BLADDER CANCER
     Dosage: AREA UNDE THE CURVE 5 OVER 15 MINUTES ADMINISTERED ON DAY 1
  3. PACLITAXEL 30MG HOSPIRA [Suspect]
     Indication: BLADDER CANCER
     Dosage: ADJUSTED TO EVERY 3 WEEKS AT THE DOSE OF 260 MG/M2 OVER 30 MINUTES ON DAY 1 OF EACH CYCLE.

REACTIONS (1)
  - Haemorrhage [None]
